FAERS Safety Report 9259418 (Version 1)
Quarter: 2013Q2

REPORT INFORMATION
  Report Type: Spontaneous
  Country: US (occurrence: US)
  Receive Date: 20130428
  Receipt Date: 20130428
  Transmission Date: 20140414
  Serious: No
  Sender: FDA-Public Use
  Company Number: US-TEVA-400693USA

PATIENT
  Sex: Female
  Weight: 68.1 kg

DRUGS (3)
  1. PLAN B ONE-STEP [Suspect]
     Indication: POST COITAL CONTRACEPTION
     Dosage: 1.5 MILLIGRAM DAILY;
     Route: 048
     Dates: start: 20130322, end: 20130322
  2. ANTACID [Concomitant]
     Indication: GASTROOESOPHAGEAL REFLUX DISEASE
  3. LUVOX [Concomitant]
     Indication: DEPRESSION

REACTIONS (1)
  - Menstruation irregular [Not Recovered/Not Resolved]
